FAERS Safety Report 13946039 (Version 1)
Quarter: 2017Q3

REPORT INFORMATION
  Report Type: Spontaneous
  Country: FR (occurrence: FR)
  Receive Date: 20170907
  Receipt Date: 20170907
  Transmission Date: 20171128
  Serious: Yes (Hospitalization)
  Sender: FDA-Public Use
  Company Number: FR-ACCORD-058102

PATIENT
  Age: 56 Year
  Sex: Male

DRUGS (3)
  1. CISPLATIN ACCORD [Suspect]
     Active Substance: CISPLATIN
     Indication: TONSIL CANCER
     Dosage: 145 MG IN ONE SINGLE INTAKE
     Route: 042
     Dates: start: 20170321
  2. FLUOROURACIL ACCORD [Suspect]
     Active Substance: FLUOROURACIL
     Indication: TONSIL CANCER
     Route: 042
     Dates: start: 20170321, end: 20170325
  3. DOCETAXEL HOSPIRA [Suspect]
     Active Substance: DOCETAXEL
     Indication: TONSIL CANCER
     Dosage: 145 MG IN ONE SINGLE INTAKE?10 MG/ML,
     Route: 042
     Dates: start: 20170321

REACTIONS (4)
  - Anaemia [Recovering/Resolving]
  - Diarrhoea [Unknown]
  - Febrile neutropenia [Recovered/Resolved]
  - Off label use [Unknown]

NARRATIVE: CASE EVENT DATE: 20170329
